FAERS Safety Report 4496511-3 (Version None)
Quarter: 2004Q4

REPORT INFORMATION
  Report Type: 
  Country: None (occurrence: None)
  Receive Date: 20041109
  Receipt Date: 20040426
  Transmission Date: 20050328
  Serious: Yes (Death, Life-Threatening, Hospitalization, Other)
  Sender: FDA-Public Use
  Company Number: PHHO2004TH05966

PATIENT
  Age: 52 Year
  Sex: Male
  Weight: 60 kg

DRUGS (5)
  1. ERL080A [Suspect]
     Indication: RENAL TRANSPLANT
     Dosage: 720 MG, BID
     Route: 048
     Dates: start: 20040217, end: 20040422
  2. BACTRIM [Concomitant]
     Dates: start: 20040227
  3. NEORAL [Suspect]
     Indication: RENAL TRANSPLANT
     Dosage: 100 MG, Q12H
     Route: 048
     Dates: start: 20040216
  4. PREDNISOLONE [Suspect]
     Indication: RENAL TRANSPLANT
     Dosage: 10 MG. QD
     Route: 048
     Dates: start: 20040219
  5. OMEPRAZOLE [Concomitant]
     Dosage: 20 MG, QD
     Dates: start: 20040218

REACTIONS (3)
  - HYPOXIA [None]
  - PNEUMONIA [None]
  - SEPSIS [None]
